FAERS Safety Report 24445299 (Version 5)
Quarter: 2025Q1

REPORT INFORMATION
  Report Type: Spontaneous
  Country: GB (occurrence: GB)
  Receive Date: 20241016
  Receipt Date: 20250129
  Transmission Date: 20250408
  Serious: Yes (Life-Threatening, Hospitalization, Other)
  Sender: MYLAN
  Company Number: GB-MYLANLABS-2024M1092797

PATIENT
  Sex: Male

DRUGS (2)
  1. CLOZARIL [Suspect]
     Active Substance: CLOZAPINE
     Indication: Schizophrenia
     Route: 048
     Dates: start: 19960625
  2. OLANZAPINE [Concomitant]
     Active Substance: OLANZAPINE
     Route: 065

REACTIONS (10)
  - Agranulocytosis [Unknown]
  - Infection [Unknown]
  - COVID-19 [Unknown]
  - Mental impairment [Unknown]
  - Haemoglobin decreased [Unknown]
  - White blood cell count decreased [Recovered/Resolved]
  - Eosinophil count decreased [Recovered/Resolved]
  - Fall [Unknown]
  - Haematocrit decreased [Unknown]
  - Red blood cell count decreased [Unknown]

NARRATIVE: CASE EVENT DATE: 20240909
